FAERS Safety Report 6883154-7 (Version None)
Quarter: 2010Q3

REPORT INFORMATION
  Report Type: 
  Country: None (occurrence: None)
  Receive Date: 20100727
  Receipt Date: 20100719
  Transmission Date: 20110219
  Serious: Yes (Hospitalization)
  Sender: FDA-Public Use
  Company Number: 015667

PATIENT
  Sex: Female
  Weight: 76 kg

DRUGS (6)
  1. CERTOLIZUMAB PEGOL (CERTOLIZUMAB PEGOL) [Suspect]
     Indication: RHEUMATOID ARTHRITIS
     Dosage: (400 MG 1X/2 WEEKS SBCUTANEOUS), (400 MG 1X/2 WEEKS SUBCUTANEOUS), 9200 MG 1X/2 WEEKS SUBCUTANEOUS)
     Route: 058
     Dates: start: 20050803, end: 20060720
  2. CERTOLIZUMAB PEGOL (CERTOLIZUMAB PEGOL) [Suspect]
     Indication: RHEUMATOID ARTHRITIS
     Dosage: (400 MG 1X/2 WEEKS SBCUTANEOUS), (400 MG 1X/2 WEEKS SUBCUTANEOUS), 9200 MG 1X/2 WEEKS SUBCUTANEOUS)
     Route: 058
     Dates: start: 20060802
  3. CERTOLIZUMAB PEGOL (CERTOLIZUMAB PEGOL) [Suspect]
     Indication: RHEUMATOID ARTHRITIS
     Dosage: (400 MG 1X/2 WEEKS SBCUTANEOUS), (400 MG 1X/2 WEEKS SUBCUTANEOUS), 9200 MG 1X/2 WEEKS SUBCUTANEOUS)
     Route: 058
     Dates: start: 20071226
  4. METHOTREXATE [Concomitant]
  5. PREDNISONE [Concomitant]
  6. PROVERA [Concomitant]

REACTIONS (1)
  - MENOMETRORRHAGIA [None]
